FAERS Safety Report 5768355-3 (Version None)
Quarter: 2008Q2

REPORT INFORMATION
  Report Type: 
  Country: None (occurrence: None)
  Receive Date: 20080612
  Receipt Date: 20080305
  Transmission Date: 20081010
  Serious: No
  Sender: FDA-Public Use
  Company Number: US-ABBOTT-08P-163-0440462-00

PATIENT
  Sex: Female

DRUGS (4)
  1. HUMIRA [Suspect]
     Indication: RHEUMATOID ARTHRITIS
     Dates: start: 20070301
  2. PREDNISONE TAB [Suspect]
     Indication: PAIN IN EXTREMITY
     Dates: end: 20080206
  3. METHOTREXATE [Concomitant]
     Indication: RHEUMATOID ARTHRITIS
     Dates: start: 20071226
  4. AMITRIPTYLINE HCL [Concomitant]
     Indication: INSOMNIA

REACTIONS (9)
  - ARTHRITIS [None]
  - DRUG INEFFECTIVE [None]
  - INJECTION SITE COLDNESS [None]
  - INJECTION SITE DISCOMFORT [None]
  - INSOMNIA [None]
  - OSTEOPOROSIS [None]
  - PAIN [None]
  - PAIN IN EXTREMITY [None]
  - STOMATITIS [None]
